FAERS Safety Report 7413706-7 (Version None)
Quarter: 2011Q2

REPORT INFORMATION
  Report Type: 
  Country: None (occurrence: None)
  Receive Date: 20110413
  Receipt Date: 20110411
  Transmission Date: 20111010
  Serious: Yes (Life-Threatening)
  Sender: FDA-Public Use
  Company Number: PHHO2011IT06357

PATIENT
  Sex: Male
  Weight: 84 kg

DRUGS (3)
  1. EVEROLIMUS [Suspect]
     Indication: HEART TRANSPLANT
     Dosage: 0.5 MG, BID
     Route: 048
     Dates: start: 20110405, end: 20110409
  2. NEORAL [Suspect]
     Indication: HEART TRANSPLANT
     Dosage: 175 MG, BID
     Route: 048
     Dates: start: 20110407, end: 20110409
  3. NEORAL [Suspect]
     Route: 048

REACTIONS (1)
  - CARDIAC TAMPONADE [None]
